FAERS Safety Report 25575194 (Version 1)
Quarter: 2025Q3

REPORT INFORMATION
  Report Type: Spontaneous
  Country: US (occurrence: US)
  Receive Date: 20250718
  Receipt Date: 20250718
  Transmission Date: 20251020
  Serious: Yes (Death, Other)
  Sender: RANBAXY
  Company Number: US-SUN PHARMACEUTICAL INDUSTRIES LTD-2025R1-516908

PATIENT
  Sex: Male

DRUGS (3)
  1. KETOCONAZOLE [Suspect]
     Active Substance: KETOCONAZOLE
     Indication: Miliaria
     Route: 048
     Dates: start: 20240410
  2. KETOCONAZOLE [Suspect]
     Active Substance: KETOCONAZOLE
     Route: 048
     Dates: start: 20240424
  3. CHLORTHALIDONE [Concomitant]
     Active Substance: CHLORTHALIDONE
     Indication: Product used for unknown indication
     Route: 065

REACTIONS (3)
  - Death [Fatal]
  - Electrocardiogram QT prolonged [Unknown]
  - Blood potassium abnormal [Unknown]
